FAERS Safety Report 10527394 (Version 1)
Quarter: 2014Q4

REPORT INFORMATION
  Report Type: Spontaneous
  Country: ES (occurrence: None)
  Receive Date: 20141016
  Receipt Date: 20141016
  Transmission Date: 20150528
  Serious: Yes (Death, Hospitalization)
  Sender: FDA-Public Use
  Company Number: FK201404058

PATIENT
  Age: 66 Year
  Sex: Male

DRUGS (3)
  1. IDARUBICIN HYDROCHLORIDE (MANUFACTURER UNKNOWN) (IDARUBICIN HYDROCHLORIDE) (IDARUBICIN HYDROCHLORIDE) [Suspect]
     Active Substance: IDARUBICIN HYDROCHLORIDE
     Indication: ACUTE MONOCYTIC LEUKAEMIA
  2. CYTARABINE (MANUFACTURER UNKNOWN) (CYTARABINE) (CYTARABINE) [Suspect]
     Active Substance: CYTARABINE
     Indication: ACUTE MONOCYTIC LEUKAEMIA
  3. ETOPOSIDE (MANUFACTURER UNKNOWN) (ETOPOSIDE) (ETOPOSIDE) [Suspect]
     Active Substance: ETOPOSIDE
     Indication: ACUTE MONOCYTIC LEUKAEMIA

REACTIONS (6)
  - Blood culture positive [None]
  - Geotrichum infection [None]
  - Candida infection [None]
  - Neutropenia [None]
  - Disseminated intravascular coagulation [None]
  - Cyanosis [None]
